FAERS Safety Report 7453322-4 (Version None)
Quarter: 2011Q2

REPORT INFORMATION
  Report Type: 
  Country: None (occurrence: None)
  Receive Date: 20110502
  Receipt Date: 20110418
  Transmission Date: 20111010
  Serious: Yes (Hospitalization)
  Sender: FDA-Public Use
  Company Number: CA-JNJFOC-20110407971

PATIENT
  Sex: Female
  Weight: 60 kg

DRUGS (3)
  1. PREDNISONE [Concomitant]
     Route: 065
  2. IMURAN [Concomitant]
  3. REMICADE [Suspect]
     Indication: CROHN'S DISEASE
     Route: 042

REACTIONS (6)
  - INFECTED CYST [None]
  - POST PROCEDURAL HAEMORRHAGE [None]
  - DYSPEPSIA [None]
  - CHEST PAIN [None]
  - VAGINAL FISTULA [None]
  - THROAT IRRITATION [None]
